FAERS Safety Report 23508153 (Version 1)
Quarter: 2024Q1

REPORT INFORMATION
  Report Type: Spontaneous
  Country: US (occurrence: US)
  Receive Date: 20240209
  Receipt Date: 20240209
  Transmission Date: 20240409
  Serious: Yes (Life-Threatening, Hospitalization, Other)
  Sender: FDA-Public Use
  Company Number: US-CSL-2024-001529

PATIENT
  Age: 36 Year
  Sex: Female

DRUGS (1)
  1. ANTICOAGULANT SODIUM CITRATE [Suspect]
     Active Substance: SODIUM CITRATE
     Indication: Anticoagulant therapy
     Route: 042
     Dates: start: 20240131, end: 20240131

REACTIONS (11)
  - Cardiac arrest [Unknown]
  - Skin swelling [Unknown]
  - Chest discomfort [Unknown]
  - Chest pain [Unknown]
  - Anal incontinence [Unknown]
  - Urinary incontinence [Unknown]
  - Pain [Unknown]
  - Muscle spasms [Unknown]
  - Product preparation error [Recovered/Resolved]
  - Seizure [Unknown]
  - Incorrect route of product administration [Unknown]

NARRATIVE: CASE EVENT DATE: 20240131
